FAERS Safety Report 13763944 (Version 1)
Quarter: 2017Q3

REPORT INFORMATION
  Report Type: Spontaneous
  Country: US (occurrence: US)
  Receive Date: 20170718
  Receipt Date: 20170718
  Transmission Date: 20171127
  Serious: Yes (Other)
  Sender: FDA-Public Use
  Company Number: US-PFIZER INC-2017303213

PATIENT
  Age: 74 Year
  Sex: Male

DRUGS (3)
  1. METHOTREXATE. [Suspect]
     Active Substance: METHOTREXATE
     Dosage: 10 MG, WEEKLY (4 TABS (10MG) ONE DAY A WEEK)
     Route: 048
  2. TOPROL XL [Suspect]
     Active Substance: METOPROLOL SUCCINATE
     Dosage: 200 MG, 1X/DAY
     Route: 048
  3. LIPITOR [Suspect]
     Active Substance: ATORVASTATIN CALCIUM
     Dosage: 10 MG, 1X/DAY (1 TAB PO ONCE A DAY AT BEDTIME)
     Route: 048

REACTIONS (12)
  - Musculoskeletal pain [Unknown]
  - Nodal osteoarthritis [Unknown]
  - Joint swelling [Unknown]
  - Arthritis infective [Unknown]
  - Bone swelling [Unknown]
  - Hyperlipidaemia [Unknown]
  - Liver function test increased [Unknown]
  - Pain in extremity [Unknown]
  - Peripheral swelling [Unknown]
  - Musculoskeletal stiffness [Unknown]
  - Arthralgia [Unknown]
  - Synovitis [Unknown]
